FAERS Safety Report 6278353-1 (Version None)
Quarter: 2009Q3

REPORT INFORMATION
  Report Type: 
  Country: None (occurrence: None)
  Receive Date: 20090722
  Receipt Date: 20090717
  Transmission Date: 20100115
  Serious: Yes (Other)
  Sender: FDA-Public Use
  Company Number: US-ASTRAZENECA-2007UW12073

PATIENT
  Age: 16916 Day
  Sex: Male
  Weight: 111.6 kg

DRUGS (12)
  1. SEROQUEL [Suspect]
     Indication: BIPOLAR DISORDER
     Route: 048
     Dates: start: 20050501, end: 20060601
  2. SEROQUEL [Suspect]
     Indication: DEPRESSION
     Route: 048
     Dates: start: 20050501, end: 20060601
  3. SEROQUEL [Suspect]
     Dosage: 50 MG - 400 MG
     Route: 048
     Dates: start: 20050511, end: 20060628
  4. SEROQUEL [Suspect]
     Dosage: 50 MG - 400 MG
     Route: 048
     Dates: start: 20050511, end: 20060628
  5. ZYPREXA [Concomitant]
  6. RISPERDAL [Concomitant]
  7. TRILEPTAL [Concomitant]
     Dosage: 150 MG TO 300 MG
     Dates: start: 20050615, end: 20061019
  8. TRICOR [Concomitant]
  9. GEODON [Concomitant]
  10. ABILIFY [Concomitant]
     Dates: start: 20050728, end: 20051001
  11. HALDOL [Concomitant]
     Dosage: 40 MG TO 60 MG
     Dates: start: 20060712, end: 20061106
  12. ZOLOFT [Concomitant]
     Dates: start: 20050824, end: 20060816

REACTIONS (6)
  - GASTRIC ULCER HAEMORRHAGE [None]
  - GLUCOSE TOLERANCE IMPAIRED [None]
  - HAEMORRHOIDS [None]
  - ROTATOR CUFF SYNDROME [None]
  - SPINAL OSTEOARTHRITIS [None]
  - TYPE 2 DIABETES MELLITUS [None]
